FAERS Safety Report 8759569 (Version 1)
Quarter: 2012Q4

REPORT INFORMATION
  Report Type: 
  Country: BR (occurrence: BR)
  Receive Date: 20120829
  Receipt Date: 20120829
  Transmission Date: 20130627
  Serious: Yes (Hospitalization, Other)
  Sender: FDA-Public Use
  Company Number: PHHY2012BR073526

PATIENT
  Age: 55 Year
  Sex: Female

DRUGS (1)
  1. ALLOPURINOL [Suspect]

REACTIONS (3)
  - Toxic epidermal necrolysis [Recovered/Resolved]
  - Dermatitis bullous [Recovered/Resolved]
  - Acute myocardial infarction [Recovered/Resolved]
